FAERS Safety Report 25208032 (Version 2)
Quarter: 2025Q2

REPORT INFORMATION
  Report Type: Spontaneous
  Country: CO (occurrence: CO)
  Receive Date: 20250417
  Receipt Date: 20250422
  Transmission Date: 20250716
  Serious: Yes (Hospitalization)
  Sender: BOEHRINGER INGELHEIM
  Company Number: CO-BoehringerIngelheim-2025-BI-021850

PATIENT
  Age: 59 Year
  Sex: Female
  Weight: 46 kg

DRUGS (1)
  1. OFEV [Suspect]
     Active Substance: NINTEDANIB
     Indication: Pulmonary fibrosis
     Dates: start: 2023

REACTIONS (3)
  - Myocardial oedema [Recovering/Resolving]
  - Pulmonary hypertension [Recovering/Resolving]
  - Bacterial infection [Recovering/Resolving]

NARRATIVE: CASE EVENT DATE: 20250317
